FAERS Safety Report 9010413 (Version 1)
Quarter: 2013Q1

REPORT INFORMATION
  Report Type: Spontaneous
  Country: BR (occurrence: BR)
  Receive Date: 20130109
  Receipt Date: 20130109
  Transmission Date: 20140127
  Serious: Yes (Hospitalization)
  Sender: FDA-Public Use
  Company Number: BR-ROCHE-1177981

PATIENT
  Sex: Male
  Weight: 66 kg

DRUGS (2)
  1. XOLAIR [Suspect]
     Indication: ASTHMA
     Route: 065
     Dates: start: 2008
  2. XOLAIR [Suspect]
     Route: 065
     Dates: start: 2010

REACTIONS (2)
  - Mental disorder [Unknown]
  - Weight decreased [Unknown]
